FAERS Safety Report 9808145 (Version 1)
Quarter: 2014Q1

REPORT INFORMATION
  Report Type: Spontaneous
  Country: KR (occurrence: KR)
  Receive Date: 20140110
  Receipt Date: 20140110
  Transmission Date: 20141002
  Serious: Yes (Other)
  Sender: FDA-Public Use
  Company Number: KR-GILEAD-2014-0091490

PATIENT
  Sex: 0

DRUGS (2)
  1. ADEFOVIR DIPIVOXIL [Suspect]
     Indication: CHRONIC HEPATITIS B
     Dosage: 10 MG, UNK
     Route: 065
  2. ENTECAVIR [Suspect]
     Indication: CHRONIC HEPATITIS B
     Dosage: 1 MG, UNK
     Route: 065

REACTIONS (1)
  - Hepatitis B [Unknown]
